FAERS Safety Report 19742554 (Version 7)
Quarter: 2022Q1

REPORT INFORMATION
  Report Type: Spontaneous
  Country: CA (occurrence: CA)
  Receive Date: 20210825
  Receipt Date: 20220329
  Transmission Date: 20220423
  Serious: Yes (Other)
  Sender: FDA-Public Use
  Company Number: CA-CELLTRION INC.-2021CA004643

PATIENT

DRUGS (10)
  1. INFLECTRA [Suspect]
     Active Substance: INFLIXIMAB-DYYB
     Indication: Crohn^s disease
     Dosage: 800 MG WEEK 0 DOSE
     Route: 042
     Dates: start: 20210312, end: 20210312
  2. INFLECTRA [Suspect]
     Active Substance: INFLIXIMAB-DYYB
     Dosage: 800 MG WEEK 2 DOSE
     Route: 042
     Dates: start: 20210326, end: 20210326
  3. INFLECTRA [Suspect]
     Active Substance: INFLIXIMAB-DYYB
     Dosage: 800 MG WEEK 6 DOSE
     Route: 042
     Dates: start: 20210423, end: 20210423
  4. INFLECTRA [Suspect]
     Active Substance: INFLIXIMAB-DYYB
     Dosage: 800 MG EVERY 8 WEEK
     Route: 042
     Dates: start: 20210618
  5. INFLECTRA [Suspect]
     Active Substance: INFLIXIMAB-DYYB
     Dosage: 800 MG EVERY 8 WEEK
     Route: 042
     Dates: start: 20210813
  6. INFLECTRA [Suspect]
     Active Substance: INFLIXIMAB-DYYB
     Dosage: 800 MG EVERY 8 WEEK
     Route: 042
     Dates: start: 20211008
  7. INFLECTRA [Suspect]
     Active Substance: INFLIXIMAB-DYYB
     Dosage: 800 MG EVERY 8 WEEK
     Route: 042
     Dates: start: 20211203
  8. INFLECTRA [Suspect]
     Active Substance: INFLIXIMAB-DYYB
     Dosage: 800 MG EVERY 8 WEEK
     Route: 042
     Dates: start: 20220127
  9. CIPRO [Concomitant]
     Active Substance: CIPROFLOXACIN HYDROCHLORIDE
     Dosage: UNK
  10. FLAGYL [Concomitant]
     Active Substance: METRONIDAZOLE\METRONIDAZOLE HYDROCHLORIDE
     Dosage: UNK

REACTIONS (12)
  - Anal fistula [Unknown]
  - Condition aggravated [Not Recovered/Not Resolved]
  - Therapeutic response shortened [Unknown]
  - Drug ineffective [Unknown]
  - Arthralgia [Not Recovered/Not Resolved]
  - Rosacea [Recovering/Resolving]
  - Blood pressure increased [Unknown]
  - Abscess [Unknown]
  - Drug level below therapeutic [Unknown]
  - Off label use [Unknown]
  - Off label use [Unknown]
  - Intentional product use issue [Unknown]

NARRATIVE: CASE EVENT DATE: 20210101
